FAERS Safety Report 10263146 (Version 1)
Quarter: 2014Q2

REPORT INFORMATION
  Report Type: Spontaneous
  Country: US (occurrence: US)
  Receive Date: 20140626
  Receipt Date: 20140626
  Transmission Date: 20141212
  Serious: No
  Sender: FDA-Public Use
  Company Number: US-MYLANLABS-2014S1003232

PATIENT
  Sex: Female

DRUGS (3)
  1. CLOZAPINE TABLETS [Suspect]
     Route: 048
     Dates: end: 201402
  2. CLOZAPINE TABLETS [Suspect]
     Route: 048
     Dates: start: 201402
  3. LITHIUM [Concomitant]

REACTIONS (2)
  - Antipsychotic drug level increased [Not Recovered/Not Resolved]
  - Drug administration error [Unknown]
